FAERS Safety Report 13166867 (Version 1)
Quarter: 2017Q1

REPORT INFORMATION
  Report Type: Spontaneous
  Country: US (occurrence: US)
  Receive Date: 20170127
  Receipt Date: 20170127
  Transmission Date: 20170428
  Serious: Yes (Hospitalization)
  Sender: FDA-Public Use
  Company Number: None

PATIENT
  Age: 76 Year
  Sex: Male
  Weight: 94.9 kg

DRUGS (1)
  1. INSULIN [Suspect]
     Active Substance: INSULIN NOS
     Indication: TYPE 1 DIABETES MELLITUS
     Route: 058
     Dates: start: 20120525, end: 20170123

REACTIONS (2)
  - Hypoglycaemia [None]
  - Hypophagia [None]

NARRATIVE: CASE EVENT DATE: 20170123
